FAERS Safety Report 9333206 (Version 1)
Quarter: 2013Q2

REPORT INFORMATION
  Report Type: Spontaneous
  Country: GB (occurrence: None)
  Receive Date: 20130604
  Receipt Date: 20130604
  Transmission Date: 20140414
  Serious: Yes (Death)
  Sender: FDA-Public Use
  Company Number: AMAG201300084

PATIENT
  Age: 89 Year
  Sex: Male

DRUGS (2)
  1. RIENSO [Suspect]
     Indication: IRON DEFICIENCY ANAEMIA
     Route: 042
     Dates: start: 20130319, end: 20130319
  2. BUSCOPAN (HYOSCINE BUTYLBROMIDE) [Concomitant]

REACTIONS (1)
  - Myocardial infarction [None]
